FAERS Safety Report 9524139 (Version 1)
Quarter: 2013Q1

REPORT INFORMATION
  Report Type: Spontaneous
  Country: US (occurrence: None)
  Receive Date: 20130305
  Receipt Date: 20130305
  Transmission Date: 20140127
  Serious: Yes (Other)
  Sender: FDA-Public Use
  Company Number: 163-21880-12020963

PATIENT
  Age: 69 Year
  Sex: Male

DRUGS (7)
  1. REVLIMID (LENALIDOMIDE) (CAPSULES) [Suspect]
     Indication: PLASMA CELL MYELOMA
     Dosage: 25 MG, QD DAYS 1-14, PO
     Route: 048
     Dates: start: 20110428, end: 20110508
  2. MS CONTIN (MORPHINE SULFATE) (UNKNOWN) [Concomitant]
  3. LOVENOX (HEPARIN-FRACTION, SODIUM SALT) (UNKNOWN) [Concomitant]
  4. AMLODIPINE (AMLODIPINE) (UNKNOWN) [Concomitant]
  5. PRILOSEC (OMEPRAZOLE) (UNKNOWN) [Concomitant]
  6. ZOFRAN (ONDANSETRON HYDROCHLORIDE) (UNKNOWN)? [Suspect]
  7. AMBIEN (ZOLPIDEM TARTRATE) (UNKNOWN) [Concomitant]

REACTIONS (1)
  - Rash [None]
